FAERS Safety Report 10226787 (Version 2)
Quarter: 2014Q3

REPORT INFORMATION
  Report Type: Spontaneous
  Country: GB (occurrence: GB)
  Receive Date: 20140610
  Receipt Date: 20140703
  Transmission Date: 20150326
  Serious: Yes (Life-Threatening, Hospitalization, Disabling)
  Sender: FDA-Public Use
  Company Number: GB-ACCORD-024132

PATIENT
  Age: 74 Year
  Sex: Female
  Weight: 60.77 kg

DRUGS (8)
  1. CLOPIDOGREL [Suspect]
     Active Substance: CLOPIDOGREL BISULFATE
     Indication: ATRIAL FIBRILLATION
     Route: 048
     Dates: start: 20070201, end: 20130909
  2. LEVOTHYROXINE [Concomitant]
     Active Substance: LEVOTHYROXINE
  3. PREGABALIN. [Concomitant]
     Active Substance: PREGABALIN
  4. ZOPICLONE [Concomitant]
     Active Substance: ZOPICLONE
  5. CARBOCISTEINE/CARBOCISTEINE LYSINE/CARBOCISTEINE SODIUM [Concomitant]
  6. AMITRIPTYLINE [Concomitant]
     Active Substance: AMITRIPTYLINE
  7. APIXABAN [Concomitant]
     Active Substance: APIXABAN
  8. PROPAFENONE. [Concomitant]
     Active Substance: PROPAFENONE

REACTIONS (5)
  - Back pain [Unknown]
  - Spinal cord haemorrhage [Not Recovered/Not Resolved]
  - Medication error [Unknown]
  - Quadriplegia [Not Recovered/Not Resolved]
  - Neck pain [Unknown]

NARRATIVE: CASE EVENT DATE: 20130909
